FAERS Safety Report 17812929 (Version 3)
Quarter: 2021Q1

REPORT INFORMATION
  Report Type: Report from Study
  Country: BR (occurrence: BR)
  Receive Date: 20200521
  Receipt Date: 20210330
  Transmission Date: 20210419
  Serious: Yes (Other)
  Sender: FDA-Public Use
  Company Number: NVSC2020BR052186

PATIENT
  Age: 52 Year
  Sex: Female
  Weight: 112 kg

DRUGS (6)
  1. COSENTYX [Suspect]
     Active Substance: SECUKINUMAB
     Indication: PSORIASIS
     Dosage: 2 DF, QMO, 2 AMPOULES
     Route: 058
     Dates: start: 20190513
  2. COSENTYX [Suspect]
     Active Substance: SECUKINUMAB
     Dosage: UNK, UNKNOWN
     Route: 058
     Dates: start: 20200419
  3. NESINA [Concomitant]
     Active Substance: ALOGLIPTIN BENZOATE
     Indication: DIABETES MELLITUS
     Dosage: 1 DF, QD 25 MG + 30 MG, ONE AND HALF YEAR AGO (PIO)
     Route: 048
  4. COSENTYX [Suspect]
     Active Substance: SECUKINUMAB
     Dosage: 300 MG
     Route: 065
  5. AZUKON [Concomitant]
     Active Substance: GLICLAZIDE
     Indication: DIABETES MELLITUS
     Dosage: 30 MG, QD, ONE AND HALF YEAR AGO
     Route: 048
  6. ROSUCOR [Concomitant]
     Active Substance: ROSUVASTATIN CALCIUM
     Indication: BLOOD CHOLESTEROL INCREASED
     Dosage: 10 MG, QD, ONE AND HALF YEAR AGO
     Route: 048

REACTIONS (5)
  - Spinal fracture [Recovering/Resolving]
  - Back pain [Not Recovered/Not Resolved]
  - Spinal pain [Recovering/Resolving]
  - Psoriasis [Recovering/Resolving]
  - Urinary tract infection [Not Recovered/Not Resolved]

NARRATIVE: CASE EVENT DATE: 20200511
